FAERS Safety Report 4497112-3 (Version None)
Quarter: 2004Q3

REPORT INFORMATION
  Report Type: 
  Country: None (occurrence: None)
  Receive Date: 20040927
  Receipt Date: 20040525
  Transmission Date: 20050211
  Serious: No
  Sender: FDA-Public Use
  Company Number: USA040568552

PATIENT
  Age: 43 Year
  Sex: Female

DRUGS (10)
  1. STRATTERA [Suspect]
     Indication: ATTENTION DEFICIT/HYPERACTIVITY DISORDER
     Dosage: 25 MG DAY
     Dates: start: 20040525
  2. WELLBUTRIN [Concomitant]
  3. 5-FU ^MEDAC^ (FLUOROURACIL SODIUM) [Concomitant]
  4. LO/OVRAL [Concomitant]
  5. ROBITUSSIN (GUAIFENESIN) [Concomitant]
  6. SYNTHROID [Concomitant]
  7. ZYRTEC [Concomitant]
  8. NEXIUM [Concomitant]
  9. CLONOPIN (CLONAZEPAM) [Concomitant]
  10. SILVER COLLOIDAL [Concomitant]

REACTIONS (5)
  - MICTURITION URGENCY [None]
  - PHARYNGOLARYNGEAL PAIN [None]
  - RASH [None]
  - RASH PRURITIC [None]
  - URINE ODOUR ABNORMAL [None]
